FAERS Safety Report 25718171 (Version 4)
Quarter: 2025Q3

REPORT INFORMATION
  Report Type: Spontaneous
  Country: US (occurrence: US)
  Receive Date: 20250824
  Receipt Date: 20250929
  Transmission Date: 20251021
  Serious: Yes (Hospitalization, Other)
  Sender: SANOFI AVENTIS
  Company Number: US-SA-2025SA250625

PATIENT
  Age: 73 Year
  Sex: Female

DRUGS (3)
  1. DUPIXENT [Suspect]
     Active Substance: DUPILUMAB
     Indication: Dermatitis atopic
     Route: 058
     Dates: start: 20250519, end: 20250519
  2. DUPIXENT [Suspect]
     Active Substance: DUPILUMAB
     Indication: Eczema
     Dosage: 300 MG, QOW
     Route: 058
     Dates: start: 202505, end: 20250811
  3. XANAX [Suspect]
     Active Substance: ALPRAZOLAM
     Indication: Seizure

REACTIONS (8)
  - Seizure [Unknown]
  - Loss of consciousness [Recovered/Resolved]
  - Musculoskeletal stiffness [Unknown]
  - Speech disorder [Unknown]
  - Lethargy [Unknown]
  - Condition aggravated [Unknown]
  - Skin swelling [Unknown]
  - Hypertension [Unknown]

NARRATIVE: CASE EVENT DATE: 20250101
